FAERS Safety Report 8595258-1 (Version None)
Quarter: 2012Q3

REPORT INFORMATION
  Report Type: 
  Country: None (occurrence: None)
  Receive Date: 20120815
  Receipt Date: 20120809
  Transmission Date: 20120928
  Serious: Yes (Hospitalization, Disabling)
  Sender: FDA-Public Use
  Company Number: JP-ABBOTT-12P-087-0967414-00

PATIENT
  Sex: Male

DRUGS (7)
  1. COMBIVIR [Suspect]
     Route: 048
     Dates: start: 20120116
  2. COMBIVIR [Suspect]
     Indication: HIV INFECTION
     Route: 048
     Dates: start: 20040401, end: 20111222
  3. REYATAZ [Suspect]
     Indication: HIV INFECTION
     Dosage: 300-400 MG/DAY
     Route: 048
     Dates: start: 20040401, end: 20111222
  4. NORVIR [Suspect]
     Dates: start: 20111224
  5. REYATAZ [Suspect]
     Dosage: 300-400 MG/DAY
     Route: 048
     Dates: start: 20111224
  6. ALLOPURINOL [Concomitant]
     Indication: HYPERURICAEMIA
     Dosage: 100 MG X 2 DAILY DOSE
     Route: 048
     Dates: start: 20040401
  7. NORVIR [Suspect]
     Indication: HIV INFECTION
     Dates: start: 20051006, end: 20111222

REACTIONS (2)
  - RENAL FUNCTION TEST ABNORMAL [None]
  - HYPERKALAEMIA [None]
